FAERS Safety Report 6008327-7 (Version None)
Quarter: 2008Q4

REPORT INFORMATION
  Report Type: 
  Country: None (occurrence: None)
  Receive Date: 20081215
  Receipt Date: 20081204
  Transmission Date: 20090506
  Serious: Yes (Hospitalization)
  Sender: FDA-Public Use
  Company Number: 2008SP024998

PATIENT
  Age: 77 Year
  Sex: Female

DRUGS (6)
  1. DIAFUSOR (GLYCERYL TRINITRATE) (GLYCERYL TRINITRATE) [Suspect]
     Indication: DRUG USE FOR UNKNOWN INDICATION
     Dosage: 10 MG; QD; CUT
     Route: 003
  2. BISOPROLOL FUMARATE [Suspect]
     Indication: DRUG USE FOR UNKNOWN INDICATION
     Dosage: 10 MG
  3. ASPIRIN [Suspect]
     Indication: DRUG USE FOR UNKNOWN INDICATION
     Dosage: 160 MG
  4. METFORMIN HCL [Suspect]
     Indication: DRUG USE FOR UNKNOWN INDICATION
     Dosage: 500 MG
  5. GLICLAZIDE (GLICLAZIDE) [Suspect]
     Indication: DRUG USE FOR UNKNOWN INDICATION
     Dosage: 80 MG
  6. PRAVASTATIN [Suspect]
     Indication: DRUG USE FOR UNKNOWN INDICATION
     Dosage: 20 MG

REACTIONS (4)
  - ANAEMIA [None]
  - GASTRIC ULCER [None]
  - LEFT VENTRICULAR FAILURE [None]
  - MELAENA [None]
